FAERS Safety Report 11421179 (Version 2)
Quarter: 2015Q3

REPORT INFORMATION
  Report Type: Spontaneous
  Country: JP (occurrence: JP)
  Receive Date: 20150826
  Receipt Date: 20150924
  Transmission Date: 20151125
  Serious: Yes (Hospitalization)
  Sender: FDA-Public Use
  Company Number: PHJP2015JP014524

PATIENT
  Age: 73 Year
  Sex: Male

DRUGS (1)
  1. EXELON PATCH [Suspect]
     Active Substance: RIVASTIGMINE
     Indication: DEMENTIA ALZHEIMER^S TYPE
     Dosage: 6.9 MG/24H (PATCH 7.5 CM2, 13.5 MG DAILY RIVASTIGMINE BASE)
     Route: 062
     Dates: end: 20150821

REACTIONS (1)
  - Cervical vertebral fracture [Unknown]
